FAERS Safety Report 18637069 (Version 1)
Quarter: 2020Q4

REPORT INFORMATION
  Report Type: Spontaneous
  Country: US (occurrence: US)
  Receive Date: 20201218
  Receipt Date: 20201218
  Transmission Date: 20210114
  Serious: Yes (Other)
  Sender: FDA-Public Use
  Company Number: US-SA-2020SA356997

PATIENT

DRUGS (2)
  1. LEFLUNOMIDE. [Suspect]
     Active Substance: LEFLUNOMIDE
  2. XELJANZ XR [Concomitant]
     Active Substance: TOFACITINIB CITRATE
     Indication: RHEUMATOID ARTHRITIS
     Dosage: 11 MG, QD
     Route: 048
     Dates: start: 20201128

REACTIONS (7)
  - Fine motor skill dysfunction [Unknown]
  - Withdrawal syndrome [Unknown]
  - Rheumatoid arthritis [Unknown]
  - Fatigue [Unknown]
  - Blood test abnormal [Unknown]
  - Alopecia [Unknown]
  - Muscular weakness [Unknown]
